FAERS Safety Report 5086983-8 (Version None)
Quarter: 2006Q3

REPORT INFORMATION
  Report Type: 
  Country: None (occurrence: None)
  Receive Date: 20060821
  Receipt Date: 20060804
  Transmission Date: 20061208
  Serious: Yes (Hospitalization, Other)
  Sender: FDA-Public Use
  Company Number: 2006AL002171

PATIENT
  Age: 81 Year
  Sex: Female

DRUGS (12)
  1. CITALOPRAM HYDROBROMIDE [Suspect]
     Indication: DEPRESSION
     Dosage: 20 MG;QD;PO
     Route: 048
  2. PLAVIX [Concomitant]
  3. ARICEPT [Concomitant]
  4. RISPERDAL [Concomitant]
  5. SEREVENT [Concomitant]
  6. LANACRIST [Concomitant]
  7. ACETAMINOPHEN [Concomitant]
  8. SOMADRIL [Concomitant]
  9. FURIX [Concomitant]
  10. PULMICORT [Concomitant]
  11. ATENOLOL [Concomitant]
  12. DEXTROPROPOXYPHENE [Concomitant]

REACTIONS (6)
  - CONTUSION [None]
  - FALL [None]
  - GASTRIC ULCER HAEMORRHAGE [None]
  - GASTROINTESTINAL HAEMORRHAGE [None]
  - HAEMOGLOBIN DECREASED [None]
  - MELAENA [None]
